FAERS Safety Report 5804604-0 (Version None)
Quarter: 2008Q3

REPORT INFORMATION
  Report Type: 
  Country: None (occurrence: None)
  Receive Date: 20080707
  Receipt Date: 20080707
  Transmission Date: 20090109
  Serious: No
  Sender: FDA-Public Use
  Company Number: None

PATIENT
  Sex: Male
  Weight: 83 kg

DRUGS (1)
  1. TEMOZOLOMIDE [Suspect]
     Dosage: 3450 MG
     Dates: start: 20080527, end: 20080627

REACTIONS (2)
  - COMPLEX PARTIAL SEIZURES [None]
  - TRANSIENT ISCHAEMIC ATTACK [None]
